FAERS Safety Report 7997822-7 (Version None)
Quarter: 2011Q4

REPORT INFORMATION
  Report Type: 
  Country: None (occurrence: None)
  Receive Date: 20111221
  Receipt Date: 20110929
  Transmission Date: 20120403
  Serious: No
  Sender: FDA-Public Use
  Company Number: US-PFIZER INC-K201101150

PATIENT
  Sex: Female

DRUGS (1)
  1. EPIPEN [Suspect]
     Dosage: 0.3 MG, TWICE
     Route: 030

REACTIONS (1)
  - DRUG EFFECT DECREASED [None]
